FAERS Safety Report 21622444 (Version 1)
Quarter: 2022Q4

REPORT INFORMATION
  Report Type: Spontaneous
  Country: JP (occurrence: JP)
  Receive Date: 20221121
  Receipt Date: 20221121
  Transmission Date: 20230113
  Serious: Yes (Other)
  Sender: FDA-Public Use
  Company Number: JP-ASPEN-JPG2020JP007215

PATIENT
  Age: 6 Year
  Sex: Male
  Weight: 20 kg

DRUGS (2)
  1. ANAPEINE [Suspect]
     Active Substance: ROPIVACAINE HYDROCHLORIDE
     Indication: Local anaesthesia
     Dosage: 10 ML, QD
     Route: 062
     Dates: start: 20200719, end: 20200719
  2. XYLOCAINE [Suspect]
     Active Substance: LIDOCAINE HYDROCHLORIDE
     Indication: Local anaesthesia
     Dosage: 10 ML, QD
     Route: 062
     Dates: start: 20200719, end: 20200719

REACTIONS (3)
  - Toxicity to various agents [Recovered/Resolved]
  - Product administered to patient of inappropriate age [Unknown]
  - Overdose [Unknown]

NARRATIVE: CASE EVENT DATE: 20200719
